FAERS Safety Report 6666361-8 (Version None)
Quarter: 2010Q2

REPORT INFORMATION
  Report Type: 
  Country: None (occurrence: None)
  Receive Date: 20100402
  Receipt Date: 20100330
  Transmission Date: 20101027
  Serious: Yes (Death)
  Sender: FDA-Public Use
  Company Number: PHHY2010GB19815

PATIENT
  Sex: Male

DRUGS (2)
  1. CLOZARIL [Suspect]
     Indication: SCHIZOPHRENIA
     Dosage: UNK
     Dates: start: 19920811
  2. CLOZARIL [Suspect]
     Dosage: 400 MG/DAY
     Dates: start: 20100228

REACTIONS (2)
  - BONE NEOPLASM MALIGNANT [None]
  - LUNG CANCER METASTATIC [None]
